FAERS Safety Report 7993574-5 (Version None)
Quarter: 2011Q4

REPORT INFORMATION
  Report Type: 
  Country: None (occurrence: None)
  Receive Date: 20111219
  Receipt Date: 20111213
  Transmission Date: 20120403
  Serious: Yes (Death)
  Sender: FDA-Public Use
  Company Number: FR-ASTRAZENECA-2011SE75365

PATIENT
  Age: 17991 Day
  Sex: Male

DRUGS (13)
  1. AMOXICILLIN TRIHYDRATE [Suspect]
     Dates: start: 20110412, end: 20110415
  2. KEPPRA [Suspect]
     Dates: start: 20110404, end: 20110412
  3. ACTRAPID [Concomitant]
     Dosage: ACCORDING TO THE PROTOCOL
  4. VANCOMYCIN HCL [Suspect]
     Dates: start: 20110410, end: 20110415
  5. MIDAZOLAM HCL [Concomitant]
     Dates: start: 20110404
  6. OFLOXACIN [Concomitant]
     Dates: start: 20110415, end: 20110423
  7. PENTOTAL [Concomitant]
     Dates: start: 20110406
  8. TAZOCILLIN [Concomitant]
     Dates: start: 20110410
  9. NOREPINEPHRINE BITARTRATE [Concomitant]
     Dates: start: 20110404
  10. AMIKACIN [Concomitant]
     Dates: start: 20110410
  11. FLAGYL [Concomitant]
     Dates: start: 20110415, end: 20110423
  12. NEXIUM [Suspect]
     Route: 048
     Dates: start: 20110404, end: 20110412
  13. SUFENTA PRESERVATIVE FREE [Concomitant]
     Dates: start: 20110404

REACTIONS (3)
  - RENAL FAILURE [None]
  - RASH MACULAR [None]
  - HEPATITIS [None]
